FAERS Safety Report 21904061 (Version 1)
Quarter: 2023Q1

REPORT INFORMATION
  Report Type: Spontaneous
  Country: US (occurrence: None)
  Receive Date: 20230123
  Receipt Date: 20230123
  Transmission Date: 20230418
  Serious: Yes (Hospitalization)
  Sender: FDA-Public Use
  Company Number: None

PATIENT
  Sex: Male

DRUGS (12)
  1. ERLEADA [Suspect]
     Active Substance: APALUTAMIDE
     Indication: Prostate cancer
  2. ATORVATATIN [Concomitant]
  3. CHLORHEX GLU SOL [Concomitant]
  4. INDOMETHACIN CAP [Concomitant]
  5. LISINOPRIL [Concomitant]
     Active Substance: LISINOPRIL
  6. METFORMIN TAB [Concomitant]
  7. METFORMIN TAB [Concomitant]
  8. VITAMINS [Concomitant]
     Active Substance: VITAMINS
  9. NASAL DECONG SPR [Concomitant]
  10. PERIOGARD SOL [Concomitant]
  11. TAMSULOSIN [Concomitant]
     Active Substance: TAMSULOSIN
  12. TYLENOL [Concomitant]
     Active Substance: ACETAMINOPHEN

REACTIONS (2)
  - Hospitalisation [None]
  - Therapy interrupted [None]
